FAERS Safety Report 17561497 (Version 1)
Quarter: 2020Q1

REPORT INFORMATION
  Report Type: Report from Study
  Country: US (occurrence: US)
  Receive Date: 20200319
  Receipt Date: 20200319
  Transmission Date: 20200409
  Serious: Yes (Hospitalization, Other)
  Sender: FDA-Public Use
  Company Number: US-GILEAD-2020-0455137

PATIENT
  Age: 10 Year
  Sex: Male
  Weight: 37.2 kg

DRUGS (16)
  1. FLOVENT HFA [Concomitant]
     Active Substance: FLUTICASONE PROPIONATE
     Dosage: 110 MCG/ACTUATION HFA INHALER; 2 PUFFS Q12H
     Route: 055
     Dates: start: 20191007
  2. ALBUTEROL HFA [Concomitant]
     Active Substance: ALBUTEROL SULFATE
     Indication: DYSPNOEA
  3. ZENPEP [Concomitant]
     Active Substance: PANCRELIPASE AMYLASE\PANCRELIPASE LIPASE\PANCRELIPASE PROTEASE
     Dosage: 4 CAPSULES TID W/MEALS; 3 CAPSULES W/3 SNACKS QD
     Dates: start: 20190625
  4. DULCOLAX (BISACODYL) [Concomitant]
     Active Substance: BISACODYL
     Indication: CONSTIPATION
     Dosage: 5 MG; 1 TAB PRN; 1 CAPSULE QFRIDAY
     Dates: start: 20170622
  5. PERIACTIN [Concomitant]
     Active Substance: CYPROHEPTADINE HYDROCHLORIDE
     Dosage: 4 MG; 1 AND 1/2 TAB TID
     Route: 048
     Dates: start: 20180809
  6. AZTREONAM LYSINE [Suspect]
     Active Substance: AZTREONAM LYSINE
     Dosage: 75 MG, TID
     Route: 055
     Dates: start: 20200214
  7. PROVENTIL HFA [Concomitant]
     Active Substance: ALBUTEROL SULFATE
     Indication: COUGH
     Dosage: UNK, BID OR Q4H PRN
     Dates: start: 20191213
  8. ALBUTEROL HFA [Concomitant]
     Active Substance: ALBUTEROL SULFATE
     Indication: COUGH
  9. AQUADEKS PEDIATRIC LIQUID [Concomitant]
     Active Substance: MINERALS\VITAMINS
     Dosage: 400 MCG/ML-600 IU/ML DROPS; 1ML QD
     Route: 048
     Dates: start: 20190625
  10. MAXALT [Concomitant]
     Active Substance: RIZATRIPTAN BENZOATE
     Indication: MIGRAINE
     Dosage: 5 MG
     Dates: start: 20161013
  11. MOTRIN CHILDREN [Concomitant]
     Active Substance: IBUPROFEN
     Indication: PYREXIA
  12. AZTREONAM LYSINE [Suspect]
     Active Substance: AZTREONAM LYSINE
     Indication: CYSTIC FIBROSIS
     Dosage: 75 MG, TID; 1 MONTH ON AND 1 MONTH OFF
     Route: 055
     Dates: start: 20200107
  13. ZOFRAN [Concomitant]
     Active Substance: ONDANSETRON HYDROCHLORIDE
     Dosage: 4 MG
     Route: 048
  14. PEDIASURE [NUTRIENTS NOS] [Concomitant]
     Indication: NUTRITIONAL SUPPLEMENTATION
     Dosage: 3 CANS DAILY
     Route: 048
     Dates: start: 20191210
  15. ALBUTEROL HFA [Concomitant]
     Active Substance: ALBUTEROL SULFATE
     Indication: WHEEZING
     Dosage: 90 MCG/ACTUATION INHALER; 4 PUFFS Q4H PRN
     Route: 055
     Dates: start: 20190916
  16. MOTRIN CHILDREN [Concomitant]
     Active Substance: IBUPROFEN
     Indication: HEADACHE
     Dosage: 200 MG, Q6H AS NEEDED
     Route: 048
     Dates: start: 20161013

REACTIONS (1)
  - Distal intestinal obstruction syndrome [Recovered/Resolved]

NARRATIVE: CASE EVENT DATE: 20191220
